FAERS Safety Report 25738432 (Version 1)
Quarter: 2025Q3

REPORT INFORMATION
  Report Type: Report from Study
  Country: AR (occurrence: AR)
  Receive Date: 20250829
  Receipt Date: 20250829
  Transmission Date: 20251020
  Serious: Yes (Hospitalization)
  Sender: ASTELLAS
  Company Number: AR-MONTEVERDE-AR-0533-20250722

PATIENT
  Age: 77 Year
  Sex: Male

DRUGS (1)
  1. ENFORTUMAB VEDOTIN-EJFV [Suspect]
     Active Substance: ENFORTUMAB VEDOTIN-EJFV
     Indication: Transitional cell carcinoma
     Dosage: 90 MILLIGRAMS EVERY 7 DAYS?POWDER FOR SOLUTION FOR INFUSION
     Route: 042
     Dates: start: 20241112

REACTIONS (5)
  - Urinary tract infection [Not Recovered/Not Resolved]
  - Pyrexia [Recovered/Resolved]
  - Lung disorder [Recovered/Resolved]
  - Cough [Not Recovered/Not Resolved]
  - Hiccups [Recovered/Resolved]

NARRATIVE: CASE EVENT DATE: 20250716
